FAERS Safety Report 25543760 (Version 1)
Quarter: 2025Q3

REPORT INFORMATION
  Report Type: Spontaneous
  Country: US (occurrence: None)
  Receive Date: 20250710
  Receipt Date: 20250710
  Transmission Date: 20251021
  Serious: Yes (Hospitalization)
  Sender: FDA-CTU
  Company Number: None

PATIENT
  Age: 59 Year
  Sex: Female

DRUGS (2)
  1. XGEVA [Suspect]
     Active Substance: DENOSUMAB
     Indication: Metastasis
     Dosage: 1.7 ML EVERY 4 WEEKS SUBCUTANEOUS?
     Route: 058
     Dates: start: 20250417
  2. XGEVA [Suspect]
     Active Substance: DENOSUMAB
     Indication: Bone cancer

REACTIONS (2)
  - Cancer surgery [None]
  - Infusion site haemorrhage [None]

NARRATIVE: CASE EVENT DATE: 20250519
